FAERS Safety Report 11229372 (Version 1)
Quarter: 2015Q2

REPORT INFORMATION
  Report Type: Report from Study
  Country: PY (occurrence: PY)
  Receive Date: 20150630
  Receipt Date: 20150630
  Transmission Date: 20150821
  Serious: Yes (Death, Other)
  Sender: FDA-Public Use
  Company Number: PHHY2013PY155523

PATIENT
  Age: 81 Year
  Sex: Male

DRUGS (3)
  1. NILOTINIB [Suspect]
     Active Substance: NILOTINIB
     Indication: CHRONIC MYELOID LEUKAEMIA
     Route: 065
  2. GLIVEC [Suspect]
     Active Substance: IMATINIB MESYLATE
     Dosage: 800 MG, QD
     Route: 048
     Dates: start: 20130611
  3. GLIVEC [Suspect]
     Active Substance: IMATINIB MESYLATE
     Indication: CHRONIC MYELOID LEUKAEMIA
     Dosage: 400 MG, QD
     Route: 048
     Dates: start: 20100726, end: 20130611

REACTIONS (7)
  - General physical health deterioration [Fatal]
  - Myelocytosis [Unknown]
  - Cardiac disorder [Fatal]
  - Chronic myeloid leukaemia [Fatal]
  - White blood cell count increased [Unknown]
  - Malignant neoplasm progression [Fatal]
  - No therapeutic response [Unknown]

NARRATIVE: CASE EVENT DATE: 201311
